FAERS Safety Report 5411551-5 (Version None)
Quarter: 2007Q3

REPORT INFORMATION
  Report Type: 
  Country: None (occurrence: None)
  Receive Date: 20070810
  Receipt Date: 20070731
  Transmission Date: 20080115
  Serious: Yes (Hospitalization, Other)
  Sender: FDA-Public Use
  Company Number: JP-PFIZER INC-2007052542

PATIENT
  Sex: Female
  Weight: 72 kg

DRUGS (12)
  1. SULPERAZON [Suspect]
     Indication: CHOLECYSTITIS
     Route: 042
     Dates: start: 20070612, end: 20070618
  2. FAMOTIDINE [Concomitant]
     Route: 042
     Dates: start: 20070612, end: 20070618
  3. LORCAM [Concomitant]
     Route: 048
     Dates: start: 20070530, end: 20070619
  4. DASEN [Concomitant]
     Route: 048
     Dates: start: 20070530, end: 20070619
  5. MUCOSTA [Concomitant]
     Route: 048
     Dates: start: 20070530, end: 20070619
  6. ATELEC [Concomitant]
     Route: 048
     Dates: end: 20070712
  7. LIPITOR [Concomitant]
     Route: 048
  8. OMEPRAZOLE [Concomitant]
     Route: 048
  9. CANDESARTAN CILEXETIL [Concomitant]
     Route: 048
  10. ISOSORBIDE DINITRATE [Concomitant]
     Route: 062
  11. URSO 250 [Concomitant]
     Route: 048
     Dates: start: 20070714
  12. CONIEL [Concomitant]
     Route: 048
     Dates: start: 20070713

REACTIONS (1)
  - AGRANULOCYTOSIS [None]
